FAERS Safety Report 4775522-4 (Version None)
Quarter: 2005Q3

REPORT INFORMATION
  Report Type: 
  Country: None (occurrence: None)
  Receive Date: 20050922
  Receipt Date: 20050912
  Transmission Date: 20060218
  Serious: Yes (Death, Hospitalization)
  Sender: FDA-Public Use
  Company Number: NSADSS2002007993

PATIENT
  Sex: Female

DRUGS (15)
  1. REMICADE [Suspect]
     Indication: RHEUMATOID ARTHRITIS
     Route: 041
     Dates: start: 20010607, end: 20010607
  2. PREDNISONE [Concomitant]
     Route: 065
  3. PLAQUENIL [Concomitant]
     Route: 065
  4. FOLIC ACID [Concomitant]
     Route: 065
  5. SYNTHROID [Concomitant]
     Route: 065
  6. TRAZODONE [Concomitant]
     Route: 065
  7. TRAZODONE [Concomitant]
  8. ASPIRIN [Concomitant]
     Route: 065
  9. CELEBREX [Concomitant]
     Route: 065
  10. METHOTREXATE [Concomitant]
     Route: 065
  11. METHOTREXATE [Concomitant]
  12. FOSAMAX [Concomitant]
     Route: 065
  13. PREMARIN [Concomitant]
     Route: 065
  14. ALBUTEROL [Concomitant]
     Route: 065
  15. PRILOSEC [Concomitant]

REACTIONS (6)
  - BASAL CELL CARCINOMA [None]
  - BRONCHIECTASIS [None]
  - BRONCHITIS [None]
  - CHRONIC OBSTRUCTIVE PULMONARY DISEASE [None]
  - PNEUMONIA [None]
  - PNEUMONITIS [None]
